FAERS Safety Report 6314274-3 (Version None)
Quarter: 2009Q3

REPORT INFORMATION
  Report Type: 
  Country: None (occurrence: None)
  Receive Date: 20090817
  Receipt Date: 20090730
  Transmission Date: 20100115
  Serious: Yes (Hospitalization)
  Sender: FDA-Public Use
  Company Number: DSA_40547_2009

PATIENT
  Sex: Male

DRUGS (9)
  1. HERBESSER (HERBESSER) 100 MG (NOT SPECIFIED) [Suspect]
     Indication: HYPERTENSION
     Dosage: (100 MG QD ORAL)
     Route: 048
     Dates: end: 20090720
  2. MAGNEXIUM OXIDE [Concomitant]
  3. REBAMIPIDE [Concomitant]
  4. DIOVAN [Concomitant]
  5. CALCIUM CARBONATE [Concomitant]
  6. DOXAZOSIN MESILATE [Concomitant]
  7. LANSOPRAZOLE [Concomitant]
  8. AMLODIPINE BESYLATE [Concomitant]
  9. FUROSEMIDE [Concomitant]

REACTIONS (8)
  - ATRIAL FIBRILLATION [None]
  - ATRIAL FLUTTER [None]
  - ELECTROCARDIOGRAM P WAVE ABNORMAL [None]
  - HAEMODIALYSIS [None]
  - HEART RATE DECREASED [None]
  - MALAISE [None]
  - OVERDOSE [None]
  - SINUS ARREST [None]
